FAERS Safety Report 8591768-1 (Version None)
Quarter: 2012Q3

REPORT INFORMATION
  Report Type: 
  Country: None (occurrence: None)
  Receive Date: 20120814
  Receipt Date: 20120809
  Transmission Date: 20120928
  Serious: Yes (Hospitalization, Other)
  Sender: FDA-Public Use
  Company Number: PHHY2012BR056279

PATIENT
  Age: 64 Year
  Sex: Male

DRUGS (13)
  1. EXELON [Suspect]
     Indication: DEMENTIA
     Dosage: 2 TIMES A DAY
     Route: 048
  2. EXELON [Suspect]
     Indication: DEMENTIA
     Dosage: 4.6 MG, DAILY
     Route: 062
     Dates: start: 20110101
  3. CARBIDOPA + LEVODOPA [Concomitant]
     Indication: PARKINSON'S DISEASE
     Dosage: 5 DF, QD
     Route: 048
  4. METFORMIN HYDROCHLORIDE [Concomitant]
     Indication: DIABETES MELLITUS
     Dosage: 2 DF, QD
     Route: 048
  5. ATROPINE [Concomitant]
     Indication: SALIVARY GLAND DISORDER
     Dosage: 2 DRP,
     Route: 060
     Dates: start: 20120101
  6. MIRTAZAPINE [Concomitant]
     Indication: DEPRESSION
     Dosage: 1 DF, QD
     Route: 048
  7. CLOZAPINE [Suspect]
     Indication: AGGRESSION
     Dosage: 150 MG, BID
     Route: 048
  8. ENTACAPONE [Concomitant]
     Indication: PARKINSON'S DISEASE
     Dosage: 4 DF, QD
     Route: 048
  9. QUETROST [Concomitant]
     Indication: COGNITIVE DISORDER
     Dosage: 4 DF, QD
     Route: 048
  10. EXELON [Suspect]
     Dosage: 4.6 MG, DAILY
     Route: 062
  11. OMEPRAZOLE [Concomitant]
     Indication: REFLUX GASTRITIS
     Dosage: 1 DF, QD
     Route: 048
  12. EXELON [Suspect]
     Dosage: 9.5 MG, DAILY
     Route: 062
  13. CLONAZEPAM [Concomitant]
     Indication: COGNITIVE DISORDER
     Dosage: 0.5 DF, QD
     Route: 048

REACTIONS (4)
  - CEREBROVASCULAR ACCIDENT [None]
  - APHASIA [None]
  - REFLUX GASTRITIS [None]
  - ATRIOVENTRICULAR SEPTAL DEFECT [None]
